FAERS Safety Report 8123685-5 (Version None)
Quarter: 2012Q1

REPORT INFORMATION
  Report Type: 
  Country: None (occurrence: None)
  Receive Date: 20120208
  Receipt Date: 20120207
  Transmission Date: 20120608
  Serious: Yes (Disabling)
  Sender: FDA-Public Use
  Company Number: PHEH2011US010306

PATIENT
  Sex: Female
  Weight: 98.866 kg

DRUGS (11)
  1. SANDOSTATIN LAR [Suspect]
     Indication: ACROMEGALY
     Dosage: 20 MG, QMO
     Route: 030
     Dates: start: 20000101
  2. POTASSIUM CHLORIDE [Concomitant]
  3. VALIUM [Concomitant]
  4. BENICAR HCT [Concomitant]
     Indication: HYPERTENSION
     Dates: start: 20071101
  5. ZEGERID [Concomitant]
  6. GLYBURIDE AND METFORMIN HCL [Concomitant]
  7. LEVOTHYROXINE SODIUM [Concomitant]
     Indication: THYROID DISORDER
     Dosage: 50-75 MG, UNK
     Dates: start: 20101001
  8. COREG [Concomitant]
     Indication: HYPERTENSION
     Dosage: 12.5 MG, BID
  9. SANDOSTATIN LAR [Suspect]
     Dosage: 30 MG, QMO
     Route: 030
     Dates: start: 20010101
  10. NORVASC [Concomitant]
     Indication: HYPERTENSION
     Dosage: 5-10 MG, UNK
     Dates: start: 20080501
  11. BUPAP [Concomitant]

REACTIONS (1)
  - NO ADVERSE EVENT [None]
